FAERS Safety Report 17955219 (Version 2)
Quarter: 2024Q1

REPORT INFORMATION
  Report Type: Report from Study
  Country: ES (occurrence: ES)
  Receive Date: 20200629
  Receipt Date: 20240208
  Transmission Date: 20240410
  Serious: Yes (Life-Threatening, Other)
  Sender: FDA-Public Use
  Company Number: None

PATIENT
  Age: 77 Year
  Sex: Female

DRUGS (8)
  1. HYDROXYCHLOROQUINE [Suspect]
     Active Substance: HYDROXYCHLOROQUINE
     Indication: COVID-19
     Dosage: HIDROXICLOROQUINA (2143A),800 MG 1 DAY + 400 MG THE REST
     Route: 048
     Dates: start: 20200402, end: 20200413
  2. PULMICORT TURBUHALER [Concomitant]
     Active Substance: BUDESONIDE
     Dosage: 2 PUFF EVERY 8 HOURS
     Dates: start: 20200402, end: 20200414
  3. VENTOLIN [Concomitant]
     Active Substance: ALBUTEROL SULFATE
     Dates: start: 20200402, end: 20200414
  4. METHYLPREDNISOLONE [Concomitant]
     Active Substance: METHYLPREDNISOLONE
     Dosage: 40 MG FIRST EVERY 8 HOURS, AFTER 5 DAYS EVERY 12
     Dates: start: 20200402, end: 20200414
  5. LEVOFLOXACIN [Suspect]
     Active Substance: LEVOFLOXACIN
     Indication: COVID-19
     Dosage: LEVOFLOXACINO (2791A)
     Route: 065
     Dates: start: 20200402, end: 20200408
  6. ENOXAPARIN SODIUM [Concomitant]
     Active Substance: ENOXAPARIN SODIUM
     Dosage: 40/24 HOURS
     Dates: start: 20200402, end: 20200414
  7. OMEPRAZOLE [Concomitant]
     Active Substance: OMEPRAZOLE
     Dosage: 1/24,OMEPRAZOL (2141A)
     Dates: start: 20200402, end: 20200414
  8. LOPINAVIR\RITONAVIR [Suspect]
     Active Substance: LOPINAVIR\RITONAVIR
     Indication: COVID-19
     Dosage: 200/20 FOUR TIMES A DAY
     Route: 065
     Dates: start: 20200402, end: 20200413

REACTIONS (6)
  - Hyperbilirubinaemia [Recovered/Resolved]
  - Liver function test abnormal [Recovered/Resolved]
  - Agitation [Recovered/Resolved]
  - Blood creatine phosphokinase increased [Recovered/Resolved]
  - Disorientation [Recovered/Resolved]
  - Urinary retention [Recovered/Resolved]

NARRATIVE: CASE EVENT DATE: 20200403
